FAERS Safety Report 6903952-0 (Version None)
Quarter: 2010Q3

REPORT INFORMATION
  Report Type: 
  Country: None (occurrence: None)
  Receive Date: 20100804
  Receipt Date: 20090220
  Transmission Date: 20110219
  Serious: Yes (Other)
  Sender: FDA-Public Use
  Company Number: US-PFIZER INC-2008100769

PATIENT
  Sex: Male
  Weight: 93.181 kg

DRUGS (3)
  1. LYRICA [Suspect]
     Indication: NEURALGIA
     Route: 048
     Dates: start: 20081117, end: 20081125
  2. TIAZAC [Concomitant]
  3. VICODIN [Concomitant]

REACTIONS (3)
  - DEPRESSION [None]
  - SUICIDAL IDEATION [None]
  - THINKING ABNORMAL [None]
